FAERS Safety Report 7573931 (Version 4)
Quarter: 2015Q1

REPORT INFORMATION
  Report Type: Spontaneous
  Country: US (occurrence: US)
  Receive Date: 20100907
  Receipt Date: 20150217
  Transmission Date: 20150721
  Serious: Yes (Hospitalization, Other)
  Sender: FDA-Public Use
  Company Number: US-BAYER-201032427NA

PATIENT
  Age: 18 Year
  Sex: Female
  Weight: 82 kg

DRUGS (13)
  1. LIDOCAINE. [Concomitant]
     Active Substance: LIDOCAINE
  2. DILAUDID [Concomitant]
     Active Substance: HYDROMORPHONE HYDROCHLORIDE
  3. MORPHINE [Concomitant]
     Active Substance: MORPHINE
  4. OXYCODONE [Concomitant]
     Active Substance: OXYCODONE
  5. FEMCON FE [Concomitant]
     Active Substance: ETHINYL ESTRADIOL\NORETHINDRONE ACETATE
  6. YAZ [Suspect]
     Active Substance: DROSPIRENONE\ETHINYL ESTRADIOL
     Indication: CONTRACEPTION
     Dosage: UNK
     Route: 048
     Dates: start: 20080215, end: 20080619
  7. YAZ [Suspect]
     Active Substance: DROSPIRENONE\ETHINYL ESTRADIOL
     Indication: DYSMENORRHOEA
  8. ONDANSETRON [Concomitant]
     Active Substance: ONDANSETRON
  9. TYLENOL [Concomitant]
     Active Substance: ACETAMINOPHEN
  10. GABAPENTIN. [Concomitant]
     Active Substance: GABAPENTIN
  11. ALTEPLASE [Concomitant]
     Active Substance: ALTEPLASE
  12. NEURONTIN [Concomitant]
     Active Substance: GABAPENTIN
  13. ETHINYLESTRAD W/FERROUS FUM/NORETHISTER ACET [Concomitant]
     Dosage: UNK
     Dates: start: 20080619, end: 20080806

REACTIONS (8)
  - Venous injury [None]
  - Gait disturbance [None]
  - Deep vein thrombosis [Recovered/Resolved]
  - Pain [None]
  - Swelling [None]
  - Post thrombotic syndrome [None]
  - Emotional distress [None]
  - Oedema [None]

NARRATIVE: CASE EVENT DATE: 200808
